FAERS Safety Report 15735780 (Version 1)
Quarter: 2018Q4

REPORT INFORMATION
  Report Type: Spontaneous
  Country: RU (occurrence: RU)
  Receive Date: 20181218
  Receipt Date: 20181218
  Transmission Date: 20190205
  Serious: Yes (Other)
  Sender: FDA-Public Use
  Company Number: RU-ASTRAZENECA-2017SE78055

PATIENT
  Age: 67 Year
  Sex: Female
  Weight: 63 kg

DRUGS (8)
  1. OMEPRAZOLE. [Concomitant]
     Active Substance: OMEPRAZOLE
  2. CONCOR [Concomitant]
     Active Substance: BISOPROLOL FUMARATE
  3. ROSUCARD [Concomitant]
     Active Substance: ROSUVASTATIN CALCIUM
  4. ASPIRIN CARDIO [Concomitant]
     Active Substance: ASPIRIN
  5. LIPRIMAR [Concomitant]
     Active Substance: ATORVASTATIN CALCIUM
  6. LOSAP [Concomitant]
  7. BRILINTA [Suspect]
     Active Substance: TICAGRELOR
     Indication: VASCULAR GRAFT
     Route: 048
     Dates: start: 201706
  8. VALZ [Concomitant]
     Active Substance: VALSARTAN

REACTIONS (7)
  - Traumatic haemorrhage [Not Recovered/Not Resolved]
  - Product use issue [Not Recovered/Not Resolved]
  - Chest pain [Not Recovered/Not Resolved]
  - Abdominal discomfort [Not Recovered/Not Resolved]
  - Off label use [Not Recovered/Not Resolved]
  - Blood pressure increased [Recovered/Resolved]
  - Dyspnoea [Recovered/Resolved]

NARRATIVE: CASE EVENT DATE: 201706
